FAERS Safety Report 14314989 (Version 1)
Quarter: 2017Q4

REPORT INFORMATION
  Report Type: Spontaneous
  Country: CA (occurrence: CA)
  Receive Date: 20171221
  Receipt Date: 20171221
  Transmission Date: 20180321
  Serious: Yes (Hospitalization, Other)
  Sender: FDA-Public Use
  Company Number: PHHY2017CA188294

PATIENT
  Sex: Female

DRUGS (7)
  1. VOLTAREN [Suspect]
     Active Substance: DICLOFENAC SODIUM
     Indication: PAIN
     Dosage: 75 MG, UNK
     Route: 048
     Dates: start: 2017
  2. PREDNISONE. [Suspect]
     Active Substance: PREDNISONE
     Indication: PRODUCT USED FOR UNKNOWN INDICATION
     Route: 042
     Dates: start: 20171120, end: 20171120
  3. INFLECTRA [Suspect]
     Active Substance: INFLIXIMAB-DYYB
     Indication: ANKYLOSING SPONDYLITIS
     Dosage: 400 MG, Q2MO
     Route: 042
     Dates: start: 20161104
  4. TYLENOL [Concomitant]
     Active Substance: ACETAMINOPHEN
     Indication: PRODUCT USED FOR UNKNOWN INDICATION
     Dosage: UNK UNK, TID
     Route: 048
  5. ZOFRAN ODT [Suspect]
     Active Substance: ONDANSETRON HYDROCHLORIDE
     Indication: PRODUCT USED FOR UNKNOWN INDICATION
     Dosage: 2 DF, UNK
     Route: 048
     Dates: start: 20171120, end: 20171120
  6. IBUPROFEN. [Suspect]
     Active Substance: IBUPROFEN
     Indication: PRODUCT USED FOR UNKNOWN INDICATION
     Dosage: 500 MG, BID
     Route: 048
  7. METHOTREXATE. [Suspect]
     Active Substance: METHOTREXATE
     Indication: PRODUCT USED FOR UNKNOWN INDICATION
     Dosage: 20 MG, QW
     Route: 065
     Dates: start: 20160601

REACTIONS (16)
  - Body temperature increased [Unknown]
  - Nausea [Unknown]
  - Tremor [Unknown]
  - Loss of consciousness [Unknown]
  - Peripheral swelling [Unknown]
  - Swelling [Unknown]
  - Erythema [Unknown]
  - Panic disorder [Unknown]
  - Malaise [Unknown]
  - Blood pressure decreased [Unknown]
  - Paraesthesia [Unknown]
  - Swelling face [Unknown]
  - Hypoaesthesia [Unknown]
  - Urticaria [Unknown]
  - Pruritus generalised [Unknown]
  - Shock [Unknown]

NARRATIVE: CASE EVENT DATE: 20171120
